FAERS Safety Report 6622046-5 (Version None)
Quarter: 2010Q1

REPORT INFORMATION
  Report Type: 
  Country: None (occurrence: None)
  Receive Date: 20100304
  Receipt Date: 20100223
  Transmission Date: 20100710
  Serious: Yes (Hospitalization)
  Sender: FDA-Public Use
  Company Number: 2010SP012063

PATIENT
  Age: 39 Year
  Sex: Female

DRUGS (1)
  1. IMPLANON [Suspect]
     Dates: start: 20091001

REACTIONS (2)
  - PREGNANCY WITH IMPLANT CONTRACEPTIVE [None]
  - VAGINAL HAEMORRHAGE [None]
